FAERS Safety Report 19247824 (Version 1)
Quarter: 2021Q2

REPORT INFORMATION
  Report Type: Spontaneous
  Country: US (occurrence: GB)
  Receive Date: 20210512
  Receipt Date: 20210512
  Transmission Date: 20210717
  Serious: Yes (Disabling, Other)
  Sender: FDA-Public Use
  Company Number: GB-BRECKENRIDGE PHARMACEUTICAL, INC.-2110462

PATIENT
  Age: 52 Year
  Sex: Female

DRUGS (4)
  1. LEVOTHYROXINE. [Concomitant]
     Active Substance: LEVOTHYROXINE
     Dates: start: 20191107
  2. DESUNIN (COLECALCIFEROL) [Concomitant]
     Dates: start: 20171207
  3. WARFARIN SODIUM. [Concomitant]
     Active Substance: WARFARIN SODIUM
     Dates: start: 20200612
  4. DULOXETINE. [Suspect]
     Active Substance: DULOXETINE
     Dates: start: 20200928

REACTIONS (5)
  - Adverse drug reaction [None]
  - Inner ear disorder [None]
  - Vomiting [None]
  - Nausea [None]
  - Dizziness [None]
